FAERS Safety Report 8087076-8 (Version None)
Quarter: 2012Q1

REPORT INFORMATION
  Report Type: 
  Country: None (occurrence: None)
  Receive Date: 20120128
  Receipt Date: 20110615
  Transmission Date: 20120608
  Serious: No
  Sender: FDA-Public Use
  Company Number: US-ABBOTT-11P-163-0733706-00

PATIENT
  Sex: Female
  Weight: 88.53 kg

DRUGS (6)
  1. NAPROXEN [Concomitant]
     Indication: RHEUMATOID ARTHRITIS
  2. ULTRAM [Concomitant]
     Indication: PAIN
  3. HUMIRA [Suspect]
     Indication: RHEUMATOID ARTHRITIS
     Dates: start: 20100101, end: 20110601
  4. METHOTREXATE [Concomitant]
     Indication: RHEUMATOID ARTHRITIS
  5. FOLIC ACID [Concomitant]
     Indication: VITAMIN SUPPLEMENTATION
  6. RESTASIS [Concomitant]
     Indication: DRY EYE

REACTIONS (5)
  - ILL-DEFINED DISORDER [None]
  - TOOTHACHE [None]
  - SINUS DISORDER [None]
  - PAIN [None]
  - FATIGUE [None]
